FAERS Safety Report 7014887-X (Version None)
Quarter: 2010Q3

REPORT INFORMATION
  Report Type: 
  Country: None (occurrence: None)
  Receive Date: 20100927
  Receipt Date: 20090812
  Transmission Date: 20110219
  Serious: No
  Sender: FDA-Public Use
  Company Number: US-ASTRAZENECA-2008UW25940

PATIENT
  Age: 74 Year
  Sex: Female
  Weight: 61.7 kg

DRUGS (11)
  1. ARIMIDEX [Suspect]
     Indication: BREAST CANCER
     Dosage: UNKNOWN
     Route: 048
     Dates: start: 20070901, end: 20080901
  2. ARIMIDEX [Suspect]
     Route: 048
     Dates: start: 20081115, end: 20090731
  3. ZOLOFT [Concomitant]
  4. SIMVASTATIN [Concomitant]
  5. CALCIUM [Concomitant]
  6. INDERAL [Concomitant]
  7. CELEBREX [Concomitant]
  8. ACIPHEX [Concomitant]
  9. CALTRATE [Concomitant]
  10. OMEGA FISH OIL [Concomitant]
  11. CENTRUM SILVER [Concomitant]

REACTIONS (4)
  - CHROMATOPSIA [None]
  - HOT FLUSH [None]
  - VISUAL IMPAIRMENT [None]
  - WEIGHT INCREASED [None]
